FAERS Safety Report 25771736 (Version 2)
Quarter: 2025Q3

REPORT INFORMATION
  Report Type: Report from Study
  Country: US (occurrence: US)
  Receive Date: 20250908
  Receipt Date: 20250922
  Transmission Date: 20251020
  Serious: Yes (Other)
  Sender: UCB
  Company Number: US-UCBSA-2025014116

PATIENT
  Age: 58 Year
  Sex: Female
  Weight: 84.8 kg

DRUGS (8)
  1. FINTEPLA [Suspect]
     Active Substance: FENFLURAMINE
     Indication: Epilepsy
     Dosage: 11 MILLIGRAM, 2X/DAY (BID)
     Dates: start: 20231102
  2. FINTEPLA [Suspect]
     Active Substance: FENFLURAMINE
     Indication: Lennox-Gastaut syndrome
     Dosage: 5 MILLILITER, 2X/DAY (BID)
  3. FINTEPLA [Suspect]
     Active Substance: FENFLURAMINE
     Dosage: 5 MILLILITER, 2X/DAY (BID)
  4. FELBATOL [Concomitant]
     Active Substance: FELBAMATE
     Indication: Seizure
     Dosage: UNK, 3X/DAY (TID) 1600 MG AM, 1200 MG LUNCH, 1600 MG EVENING
     Route: 048
  5. APTIOM [Concomitant]
     Active Substance: ESLICARBAZEPINE ACETATE
     Indication: Seizure
     Dosage: 600 MILLIGRAM, ONCE DAILY (QD)
  6. XCOPRI [Concomitant]
     Active Substance: CENOBAMATE
     Indication: Seizure
     Dosage: 100 MILLIGRAM, ONCE DAILY (QD)
  7. REMERON [Concomitant]
     Active Substance: MIRTAZAPINE
     Indication: Depression
     Dosage: 15 MILLIGRAM, ONCE DAILY (QD)
     Route: 048
  8. CARBAMAZEPINE [Concomitant]
     Active Substance: CARBAMAZEPINE
     Indication: Seizure
     Dosage: 400 MILLIGRAM, 3X/DAY (TID)

REACTIONS (4)
  - Pneumonia [Recovered/Resolved]
  - Mitral valve incompetence [Not Recovered/Not Resolved]
  - Left atrial enlargement [Recovered/Resolved]
  - Nausea [Not Recovered/Not Resolved]

NARRATIVE: CASE EVENT DATE: 20250306
